FAERS Safety Report 18675693 (Version 1)
Quarter: 2020Q4

REPORT INFORMATION
  Report Type: Spontaneous
  Country: US (occurrence: US)
  Receive Date: 20201229
  Receipt Date: 20201229
  Transmission Date: 20210114
  Serious: No
  Sender: FDA-Public Use
  Company Number: US-HORIZON-2020HZN02809

PATIENT
  Age: 29 Year
  Sex: Male

DRUGS (1)
  1. PROCYSBI [Suspect]
     Active Substance: CYSTEAMINE BITARTRATE
     Indication: AMINO ACID METABOLISM DISORDER
     Dosage: TAKE 4 CAPSULES ON AN EMPTY STOMACH EVERY 12 HOURS
     Route: 048

REACTIONS (3)
  - Off label use [Unknown]
  - Dyspepsia [Unknown]
  - Nausea [Unknown]
